FAERS Safety Report 7829593-9 (Version None)
Quarter: 2011Q4

REPORT INFORMATION
  Report Type: 
  Country: None (occurrence: None)
  Receive Date: 20111020
  Receipt Date: 20090702
  Transmission Date: 20120403
  Serious: Yes (Death, Hospitalization)
  Sender: FDA-Public Use
  Company Number: PHHY2010TW16361

PATIENT

DRUGS (2)
  1. TASIGNA [Suspect]
     Indication: CHRONIC MYELOID LEUKAEMIA
     Dosage: 2 DF, BID
     Route: 048
  2. TASIGNA [Suspect]
     Dosage: 1 DF, BID
     Route: 048

REACTIONS (3)
  - DEATH [None]
  - ABDOMINAL PAIN [None]
  - CYSTITIS [None]
